FAERS Safety Report 10359702 (Version 1)
Quarter: 2014Q3

REPORT INFORMATION
  Report Type: Spontaneous
  Country: IT (occurrence: IT)
  Receive Date: 20140804
  Receipt Date: 20140804
  Transmission Date: 20150326
  Serious: Yes (Other)
  Sender: FDA-Public Use
  Company Number: IT-JNJFOC-20140720228

PATIENT
  Age: 55 Year
  Sex: Female

DRUGS (1)
  1. ACTIGRIP GIORNO AND NOTTE [Suspect]
     Active Substance: ACETAMINOPHEN\DIPHENHYDRAMINE\PSEUDOEPHEDRINE
     Indication: PRODUCT USED FOR UNKNOWN INDICATION
     Route: 048
     Dates: start: 20120112, end: 20120117

REACTIONS (2)
  - Atrial fibrillation [Unknown]
  - Electrocardiogram QT prolonged [Unknown]

NARRATIVE: CASE EVENT DATE: 20120117
